FAERS Safety Report 9736230 (Version 2)
Quarter: 2014Q1

REPORT INFORMATION
  Report Type: Spontaneous
  Country: US (occurrence: US)
  Receive Date: 20131206
  Receipt Date: 20140210
  Transmission Date: 20141002
  Serious: Yes (Hospitalization)
  Sender: FDA-Public Use
  Company Number: US-009507513-1312USA003352

PATIENT
  Age: 73 Year
  Sex: Female

DRUGS (2)
  1. OXYTROL FOR WOMEN [Suspect]
     Indication: URINARY INCONTINENCE
     Dosage: UNK, ONCE
     Route: 062
     Dates: start: 20131111
  2. OXYTROL FOR WOMEN [Suspect]
     Dosage: UNK, ONCE
     Route: 062
     Dates: start: 20131115

REACTIONS (7)
  - Atrial fibrillation [Unknown]
  - Cardiac ablation [Unknown]
  - Dyspnoea [Not Recovered/Not Resolved]
  - Erythema [Unknown]
  - Cough [Not Recovered/Not Resolved]
  - Drug ineffective [Unknown]
  - Product adhesion issue [Unknown]
